FAERS Safety Report 5775211-3 (Version None)
Quarter: 2008Q2

REPORT INFORMATION
  Report Type: 
  Country: None (occurrence: None)
  Receive Date: 20080617
  Receipt Date: 20080611
  Transmission Date: 20081010
  Serious: Yes (Hospitalization, Disabling)
  Sender: FDA-Public Use
  Company Number: B0517408A

PATIENT
  Age: 72 Year
  Sex: Female

DRUGS (10)
  1. ZOVIRAX [Suspect]
     Indication: HERPES ZOSTER
     Dosage: 250MG THREE TIMES PER DAY
     Route: 042
     Dates: start: 20071225, end: 20071227
  2. RESLIN [Concomitant]
     Dosage: 150MG PER DAY
     Route: 048
  3. MYSLEE [Concomitant]
     Dosage: 10MG PER DAY
     Route: 048
  4. MEILAX [Concomitant]
     Dosage: 2MG PER DAY
     Route: 048
  5. MIRADOL [Concomitant]
     Dosage: 100MG PER DAY
     Route: 048
  6. PAXIL [Concomitant]
     Dosage: 30MG PER DAY
     Route: 048
  7. ALOSENN [Concomitant]
     Dosage: .5G PER DAY
     Route: 048
  8. LOXONIN [Concomitant]
     Dosage: 180MG PER DAY
     Route: 048
  9. SELBEX [Concomitant]
     Dosage: 300MG PER DAY
  10. CYANOCOBALAMIN [Concomitant]
     Dosage: 1500MCG PER DAY

REACTIONS (5)
  - BLOOD CREATININE INCREASED [None]
  - BLOOD UREA INCREASED [None]
  - NERVOUS SYSTEM DISORDER [None]
  - RENAL FAILURE ACUTE [None]
  - SPEECH DISORDER [None]
